FAERS Safety Report 13689675 (Version 5)
Quarter: 2017Q3

REPORT INFORMATION
  Report Type: Spontaneous
  Country: JP (occurrence: JP)
  Receive Date: 20170626
  Receipt Date: 20170831
  Transmission Date: 20171127
  Serious: Yes (Other)
  Sender: FDA-Public Use
  Company Number: JP-PFIZER INC-2017272143

PATIENT
  Age: 82 Year
  Sex: Male

DRUGS (15)
  1. ZOLPIDEM TARTRATE. [Interacting]
     Active Substance: ZOLPIDEM TARTRATE
     Dosage: 10 MG, 1X/DAY
     Route: 048
  2. URSODEOXYCHOLIC ACID [Interacting]
     Active Substance: URSODIOL
     Dosage: 2 DF (2 TABLETS), 3X/DAY
     Route: 048
  3. TAKECAB [Interacting]
     Active Substance: VONOPRAZAN FUMURATE
     Dosage: 10 MG, 1X/DAY
     Route: 048
  4. NEUROVITAN /00176001/ [Interacting]
     Active Substance: CYANOCOBALAMIN\PYRIDOXINE HYDROCHLORIDE\THIAMINE
     Dosage: 1 DF (1 TABLET), 1X/DAY
     Route: 048
  5. LYRICA [Suspect]
     Active Substance: PREGABALIN
     Dosage: 50 MG, 2X/DAY
     Route: 048
  6. MOSAPRIDE CITRATE [Interacting]
     Active Substance: MOSAPRIDE CITRATE
     Dosage: 5 MG, 3X/DAY
     Route: 048
  7. BENZALIN /00036201/ [Interacting]
     Active Substance: NITRAZEPAM
     Dosage: 5 MG, 1X/DAY
     Route: 048
  8. TRAMCET [Interacting]
     Active Substance: ACETAMINOPHEN\TRAMADOL
     Dosage: 1 DF (1 TABLET), 4X/DAY,
     Route: 048
  9. DONEPEZIL HCL [Interacting]
     Active Substance: DONEPEZIL HYDROCHLORIDE
     Dosage: 5 MG, 1X/DAY
     Route: 048
  10. ASPARA-CA [Interacting]
     Active Substance: CALCIUM ASPARTATE
     Dosage: 400 MG, 3X/DAY
     Route: 048
  11. MAGMITT [Interacting]
     Active Substance: MAGNESIUM OXIDE
     Dosage: 330 MG, 3X/DAY
     Route: 048
  12. SENNOSIDE /00571901/ [Interacting]
     Active Substance: SENNOSIDES A AND B
     Dosage: 12 MG, 1X/DAY
     Route: 048
  13. NEXIUM [Interacting]
     Active Substance: ESOMEPRAZOLE MAGNESIUM
     Dosage: 20 MG, 1X/DAY
     Route: 048
  14. TAMSULOSIN HYDROCHLORIDE. [Interacting]
     Active Substance: TAMSULOSIN HYDROCHLORIDE
     Dosage: 0.2 MG, 1X/DAY
     Route: 048
  15. DAIOU (HERBALS) [Interacting]
     Active Substance: HERBALS
     Dosage: 0.75 G, 1X/DAY
     Route: 048

REACTIONS (2)
  - Drug interaction [Not Recovered/Not Resolved]
  - Dementia [Recovering/Resolving]

NARRATIVE: CASE EVENT DATE: 201601
